FAERS Safety Report 24205053 (Version 1)
Quarter: 2024Q3

REPORT INFORMATION
  Report Type: Report from Study
  Country: TH (occurrence: TH)
  Receive Date: 20240813
  Receipt Date: 20240813
  Transmission Date: 20241017
  Serious: Yes (Other)
  Sender: NOVARTIS
  Company Number: TH-002147023-NVSC2023TH192098

PATIENT
  Age: 60 Year
  Sex: Female

DRUGS (7)
  1. KISQALI [Suspect]
     Active Substance: RIBOCICLIB
     Indication: Breast cancer metastatic
     Dosage: 400 MG, QD (200: 2X2) (FOR 21 DAYS, 7 DAY OFF)
     Route: 048
     Dates: start: 20230801
  2. KISQALI [Suspect]
     Active Substance: RIBOCICLIB
     Dosage: 400 MG, QD (200: 2X2) (FOR 21 DAYS, 7 DAY OFF)
     Route: 048
     Dates: start: 20230905
  3. KISQALI [Suspect]
     Active Substance: RIBOCICLIB
     Dosage: 400 MG, QD (200) 2X2)
     Route: 065
     Dates: start: 20231010
  4. KISQALI [Suspect]
     Active Substance: RIBOCICLIB
     Dosage: 200 MG
     Route: 048
     Dates: end: 20231212
  5. KISQALI [Suspect]
     Active Substance: RIBOCICLIB
     Dosage: 200 MG (TAKING 3 WEEKS, SKIPPING 1 WEEK)
     Route: 048
     Dates: start: 20231226
  6. KISQALI [Suspect]
     Active Substance: RIBOCICLIB
     Dosage: 200 MG
     Route: 048
  7. FEMARA [Suspect]
     Active Substance: LETROZOLE
     Indication: Product used for unknown indication
     Dosage: 2.5 MG (1X1)
     Route: 048

REACTIONS (5)
  - Neutropenia [Unknown]
  - Off label use [Unknown]
  - Memory impairment [Unknown]
  - White blood cell count decreased [Unknown]
  - Platelet count decreased [Unknown]

NARRATIVE: CASE EVENT DATE: 20231212
